FAERS Safety Report 6415098-9 (Version None)
Quarter: 2009Q4

REPORT INFORMATION
  Report Type: 
  Country: None (occurrence: None)
  Receive Date: 20091022
  Receipt Date: 20091009
  Transmission Date: 20100525
  Serious: Yes (Life-Threatening, Hospitalization, Other)
  Sender: FDA-Public Use
  Company Number: DEP_00302_2009

PATIENT
  Age: 15 Year
  Sex: Female
  Weight: 69.5 kg

DRUGS (1)
  1. METFORMIN HCL [Suspect]
     Indication: DRUG USE FOR UNKNOWN INDICATION
     Dosage: (38.25 G 1X, [0.55 G/KG BODY WEIGHT] ORAL)
     Route: 048

REACTIONS (9)
  - BASE EXCESS [None]
  - BLOOD GLUCOSE INCREASED [None]
  - HAEMODIALYSIS [None]
  - METABOLIC ACIDOSIS [None]
  - OVERDOSE [None]
  - RENAL FAILURE ACUTE [None]
  - SOMNOLENCE [None]
  - SUICIDE ATTEMPT [None]
  - VOMITING [None]
